FAERS Safety Report 23650305 (Version 6)
Quarter: 2024Q2

REPORT INFORMATION
  Report Type: Report from Study
  Country: GT (occurrence: GT)
  Receive Date: 20240319
  Receipt Date: 20240625
  Transmission Date: 20240716
  Serious: Yes (Hospitalization, Other)
  Sender: FDA-Public Use
  Company Number: GT-JNJFOC-20240280847

PATIENT
  Age: 52 Year
  Sex: Male
  Weight: 78 kg

DRUGS (1)
  1. IMBRUVICA [Suspect]
     Active Substance: IBRUTINIB
     Indication: Mantle cell lymphoma
     Dosage: 4 CAPSULES A DAY
     Route: 048
     Dates: start: 20230401

REACTIONS (15)
  - Haematochezia [Unknown]
  - Gastritis [Unknown]
  - Malaise [Not Recovered/Not Resolved]
  - Cardiac disorder [Unknown]
  - Insomnia [Unknown]
  - Gastrointestinal disorder [Unknown]
  - Abdominal pain upper [Unknown]
  - Treatment noncompliance [Unknown]
  - Decreased appetite [Unknown]
  - Illness [Unknown]
  - Fatigue [Unknown]
  - Hospitalisation [Unknown]
  - Diarrhoea [Unknown]
  - Abdominal discomfort [Unknown]
  - Drug ineffective [Unknown]

NARRATIVE: CASE EVENT DATE: 20240201
